FAERS Safety Report 19134153 (Version 2)
Quarter: 2021Q2

REPORT INFORMATION
  Report Type: Spontaneous
  Country: US (occurrence: US)
  Receive Date: 20210414
  Receipt Date: 20210511
  Transmission Date: 20210717
  Serious: Yes (Hospitalization)
  Sender: FDA-Public Use
  Company Number: US-ROCHE-2809920

PATIENT
  Sex: Female

DRUGS (1)
  1. ALECENSA [Suspect]
     Active Substance: ALECTINIB HYDROCHLORIDE
     Indication: LUNG NEOPLASM MALIGNANT
     Route: 048
     Dates: start: 20210207

REACTIONS (9)
  - Chills [Unknown]
  - Fatigue [Unknown]
  - Lymphadenopathy [Unknown]
  - Taste disorder [Unknown]
  - Decreased appetite [Unknown]
  - Vomiting [Unknown]
  - Nausea [Unknown]
  - Pyrexia [Unknown]
  - Mouth ulceration [Unknown]
